FAERS Safety Report 11893269 (Version 2)
Quarter: 2016Q1

REPORT INFORMATION
  Report Type: Spontaneous
  Country: RU (occurrence: RU)
  Receive Date: 20160106
  Receipt Date: 20160125
  Transmission Date: 20160526
  Serious: Yes (Other)
  Sender: FDA-Public Use
  Company Number: RU-MYLANLABS-2015M1047959

PATIENT

DRUGS (2)
  1. FONDAPARINUX [Suspect]
     Active Substance: FONDAPARINUX
     Indication: ANTICOAGULANT THERAPY
     Dosage: 5 MG, QD FOR 5 DAYS
     Route: 058
     Dates: start: 20151020, end: 20151115
  2. FONDAPARINUX [Suspect]
     Active Substance: FONDAPARINUX
     Indication: OFF LABEL USE
     Dosage: 2.5 MG, QD
     Route: 058

REACTIONS (2)
  - Off label use [Unknown]
  - Sepsis [Unknown]
